FAERS Safety Report 12182462 (Version 3)
Quarter: 2016Q2

REPORT INFORMATION
  Report Type: Spontaneous
  Country: AU (occurrence: AU)
  Receive Date: 20160316
  Receipt Date: 20160415
  Transmission Date: 20160815
  Serious: Yes (Hospitalization)
  Sender: FDA-Public Use
  Company Number: AU-ACTELION-A-CH2016-131910

PATIENT
  Age: 15 Year
  Sex: Male

DRUGS (4)
  1. VELETRI [Suspect]
     Active Substance: EPOPROSTENOL
     Indication: PULMONARY ARTERIAL HYPERTENSION
     Dosage: 1.5 MG, CONT INFUS
     Route: 042
     Dates: start: 20151130
  2. TRACLEER [Suspect]
     Active Substance: BOSENTAN
     Indication: PULMONARY ARTERIAL HYPERTENSION
     Dosage: 125 MG, BID
     Route: 048
     Dates: start: 20040301
  3. SANDOMIGRAN [Concomitant]
     Active Substance: PIZOTYLINE
  4. SILDENAFIL. [Concomitant]
     Active Substance: SILDENAFIL
     Dosage: UNK
     Route: 048
     Dates: start: 20150101

REACTIONS (10)
  - Catheter site dermatitis [Recovered/Resolved with Sequelae]
  - Catheter site pain [Recovered/Resolved]
  - Sepsis [Recovered/Resolved]
  - Neutrophil count increased [Recovered/Resolved]
  - C-reactive protein increased [Recovered/Resolved]
  - Pyrexia [Recovered/Resolved]
  - Staphylococcal sepsis [Recovered/Resolved]
  - Catheter site swelling [Recovered/Resolved]
  - Catheter site rash [Recovered/Resolved with Sequelae]
  - Device related infection [Recovered/Resolved]

NARRATIVE: CASE EVENT DATE: 2016
